FAERS Safety Report 20420396 (Version 6)
Quarter: 2023Q1

REPORT INFORMATION
  Report Type: Other
  Country: SK (occurrence: SK)
  Receive Date: 20220203
  Receipt Date: 20230113
  Transmission Date: 20230418
  Serious: Yes (Hospitalization, Other)
  Sender: FDA-Public Use
  Company Number: None

PATIENT
  Age: 22 Year
  Sex: Male

DRUGS (12)
  1. DICLOFENAC [Interacting]
     Active Substance: DICLOFENAC
     Indication: Headache
     Dosage: 100 MILLIGRAM DAILY, TOTAL, TABLET
     Route: 048
  2. DICLOFENAC [Interacting]
     Active Substance: DICLOFENAC
     Indication: Pain
     Dosage: 100 MILLIGRAM DAILY, TOTAL, TABLET
     Route: 065
  3. IBUPROFEN [Interacting]
     Active Substance: IBUPROFEN
     Indication: Headache
     Dosage: 400 MILLIGRAM, TABLET (ONE TOTAL)
     Route: 048
  4. IBUPROFEN [Interacting]
     Active Substance: IBUPROFEN
     Indication: Pain
     Dosage: 1 DOSAGE FORM, TOTAL
     Route: 065
  5. IBUPROFEN [Interacting]
     Active Substance: IBUPROFEN
     Dosage: 400 MILLIGRAM, TABLET (ONE TOTAL)
     Route: 065
  6. ALPRAZOLAM [Interacting]
     Active Substance: ALPRAZOLAM
     Indication: Anxiety
     Dosage: 0.5 MILLIGRAM, TABLET (ONE TOTAL)
     Route: 048
  7. ALPRAZOLAM [Interacting]
     Active Substance: ALPRAZOLAM
     Dosage: 1 DOSAGE FORM, TOTAL
     Route: 065
  8. ALPRAZOLAM [Interacting]
     Active Substance: ALPRAZOLAM
     Dosage: 0.5 MILLIGRAM, TABLET (ONE TOTAL)
     Route: 065
  9. COCAINE [Interacting]
     Active Substance: COCAINE
     Indication: Drug abuse
     Dosage: 1 DF, 1 DOSE (1 TOTAL), RESPIRATORY (INHALATION), INTRA-NASAL
  10. COCAINE [Interacting]
     Active Substance: COCAINE
     Dosage: 1 DOSAGE FORM, UNKNOWN
     Route: 065
  11. COCAINE [Interacting]
     Active Substance: COCAINE
     Dosage: UNK
     Route: 065
  12. ALCOHOL [Suspect]
     Active Substance: ALCOHOL
     Indication: Alcohol abuse
     Dosage: UNK, 9 BEERS (0.5L) IN TOTAL WITHIN 2 DAYS
     Route: 048

REACTIONS (11)
  - Myoclonus [Recovered/Resolved]
  - Muscle spasms [Recovered/Resolved]
  - Muscle spasms [Recovered/Resolved]
  - Dystonia [Recovered/Resolved]
  - Drug interaction [Recovered/Resolved]
  - Drug interaction [Recovered/Resolved]
  - Alcohol interaction [Recovered/Resolved]
  - Dyskinesia [Recovered/Resolved]
  - Seizure [Recovered/Resolved]
  - Muscle twitching [Recovered/Resolved]
  - Off label use [Unknown]
